FAERS Safety Report 4282074-4 (Version None)
Quarter: 2004Q1

REPORT INFORMATION
  Report Type: 
  Country: None (occurrence: None)
  Receive Date: 20040130
  Receipt Date: 20030204
  Transmission Date: 20041129
  Serious: Yes (Hospitalization)
  Sender: FDA-Public Use
  Company Number: US-BRISTOL-MYERS SQUIBB COMPANY-12177069

PATIENT
  Sex: Male

DRUGS (4)
  1. DESYREL [Suspect]
     Indication: DEPRESSION
     Route: 048
     Dates: start: 19980820, end: 19980902
  2. DESYREL [Suspect]
     Indication: INSOMNIA
     Route: 048
     Dates: start: 19980820, end: 19980902
  3. ZOLOFT [Concomitant]
  4. LORCET-HD [Concomitant]
     Indication: PAIN

REACTIONS (1)
  - PRIAPISM [None]
